FAERS Safety Report 13473973 (Version 1)
Quarter: 2017Q2

REPORT INFORMATION
  Report Type: Report from Study
  Country: TN (occurrence: TN)
  Receive Date: 20170424
  Receipt Date: 20170424
  Transmission Date: 20170830
  Serious: Yes (Death)
  Sender: FDA-Public Use
  Company Number: TN-SA-2017SA071760

PATIENT
  Age: 50 Year
  Sex: Female

DRUGS (9)
  1. PLAVIX [Suspect]
     Active Substance: CLOPIDOGREL BISULFATE
     Indication: MYOCARDIAL INFARCTION
     Route: 048
     Dates: start: 20160108, end: 20170314
  2. CORDARONE [Concomitant]
     Active Substance: AMIODARONE HYDROCHLORIDE
     Route: 048
     Dates: end: 20170314
  3. INSULIN [Concomitant]
     Active Substance: INSULIN NOS
     Route: 058
     Dates: end: 20170314
  4. ASPEGIC [Concomitant]
     Active Substance: ASPIRIN DL-LYSINE
     Route: 048
     Dates: end: 20170314
  5. ATOR [Concomitant]
     Active Substance: ATORVASTATIN CALCIUM
     Route: 048
     Dates: end: 20170314
  6. CINCOR [Concomitant]
     Route: 048
     Dates: end: 20170314
  7. RAZON [Concomitant]
     Route: 048
     Dates: end: 20170314
  8. PLAVIX [Suspect]
     Active Substance: CLOPIDOGREL BISULFATE
     Indication: STENT PLACEMENT
     Route: 048
     Dates: start: 20160108, end: 20170314
  9. TRIATEC [Concomitant]
     Active Substance: RAMIPRIL
     Route: 048
     Dates: end: 20170314

REACTIONS (1)
  - Cardiac arrest [Fatal]

NARRATIVE: CASE EVENT DATE: 20170314
